FAERS Safety Report 11109837 (Version 1)
Quarter: 2015Q2

REPORT INFORMATION
  Report Type: Spontaneous
  Country: US (occurrence: US)
  Receive Date: 20150513
  Receipt Date: 20150513
  Transmission Date: 20150821
  Serious: Yes (Death, Other)
  Sender: FDA-Public Use
  Company Number: US-ASTRAZENECA-2015SE42741

PATIENT
  Age: 22154 Day
  Sex: Male

DRUGS (23)
  1. SULPHAMETHOXAZOLE [Concomitant]
     Active Substance: SULFAMETHOXAZOLE
     Dates: start: 20110429
  2. GLYCOLAX [Concomitant]
     Active Substance: POLYETHYLENE GLYCOL 3350
     Route: 048
     Dates: start: 20110424
  3. CEFALEXIN [Concomitant]
     Active Substance: CEPHALEXIN
     Dates: start: 20070622
  4. CIPROFLOXACIN HCL [Concomitant]
     Active Substance: CIPROFLOXACIN HYDROCHLORIDE
     Dates: start: 20110429
  5. METRONIDAZOLE. [Concomitant]
     Active Substance: METRONIDAZOLE
     Dates: start: 20110601
  6. GLUCOTROL XL [Concomitant]
     Active Substance: GLIPIZIDE
     Route: 048
     Dates: start: 20110424
  7. PRINIVIL [Concomitant]
     Active Substance: LISINOPRIL
     Route: 048
     Dates: start: 20110424
  8. FISH OIL [Concomitant]
     Active Substance: FISH OIL
     Route: 048
     Dates: start: 20110424
  9. HYDROCODONE [Concomitant]
     Active Substance: HYDROCODONE
     Dates: start: 20110510
  10. COMPAZINE [Concomitant]
     Active Substance: PROCHLORPERAZINE MALEATE
     Dates: start: 20110526
  11. BYETTA [Suspect]
     Active Substance: EXENATIDE
     Route: 065
  12. SPIRONOLACTONE. [Concomitant]
     Active Substance: SPIRONOLACTONE
     Dates: start: 20110629
  13. LANTUS [Concomitant]
     Active Substance: INSULIN GLARGINE
     Dosage: 100 UNITS/ML DAILY
     Dates: start: 20110424
  14. CATAPRES [Concomitant]
     Active Substance: CLONIDINE HYDROCHLORIDE
     Route: 048
     Dates: start: 20110424
  15. HYDRODIURIL [Concomitant]
     Active Substance: HYDROCHLOROTHIAZIDE
     Route: 048
     Dates: start: 20110424
  16. IBUPROFEN. [Concomitant]
     Active Substance: IBUPROFEN
     Dates: start: 20110526
  17. ALLEGRA [Concomitant]
     Active Substance: FEXOFENADINE HYDROCHLORIDE
     Route: 048
     Dates: start: 20110424
  18. GLUCOPHAGE [Concomitant]
     Active Substance: METFORMIN HYDROCHLORIDE
     Route: 048
     Dates: start: 20110424
  19. NOVOLOG [Concomitant]
     Active Substance: INSULIN ASPART
     Dosage: 100 UNITS/ML THREE TIMES DAILY BEFORE MEALS.
     Dates: start: 20110424
  20. OXYCODONE [Concomitant]
     Active Substance: OXYCODONE
     Dates: start: 20110519
  21. ALPRAZOLAM. [Concomitant]
     Active Substance: ALPRAZOLAM
     Dates: start: 20110629
  22. HUMALOG [Concomitant]
     Active Substance: INSULIN LISPRO
     Dosage: 100 UNITS/ML THREE TIMES DAILY BEFORE MEALS.
     Dates: start: 20110424
  23. ZOFRAN [Concomitant]
     Active Substance: ONDANSETRON HYDROCHLORIDE
     Dates: start: 20110526

REACTIONS (7)
  - Metastases to lung [Unknown]
  - Pancreatic carcinoma metastatic [Fatal]
  - Bile duct adenocarcinoma [Unknown]
  - Metastases to liver [Unknown]
  - Jaundice cholestatic [Unknown]
  - Cholangiocarcinoma [Unknown]
  - Ascites [Unknown]

NARRATIVE: CASE EVENT DATE: 20110427
